FAERS Safety Report 26101058 (Version 1)
Quarter: 2025Q4

REPORT INFORMATION
  Report Type: Report from Study
  Country: CA (occurrence: CA)
  Receive Date: 20251128
  Receipt Date: 20251128
  Transmission Date: 20260117
  Serious: Yes (Other)
  Sender: TEVA
  Company Number: CA-TEVA-VS-3396823

PATIENT
  Age: 26 Year
  Sex: Female

DRUGS (2)
  1. CARBAMAZEPINE [Suspect]
     Active Substance: CARBAMAZEPINE
     Indication: Seizure
     Dosage: DOSE FORM: NOT SPECIFIED, ROUTE OF ADMINISTRATION:OTHER
     Route: 065
  2. TYSABRI [Suspect]
     Active Substance: NATALIZUMAB
     Indication: Multiple sclerosis
     Dosage: DOSE FORM: SOLUTION INTRAVENOUS, ROUTE OF ADMINISTRATION: OTHER
     Route: 065

REACTIONS (2)
  - Seizure [Unknown]
  - Rash [Unknown]
